FAERS Safety Report 4334880-5 (Version None)
Quarter: 2004Q2

REPORT INFORMATION
  Report Type: 
  Country: None (occurrence: None)
  Receive Date: 20040408
  Receipt Date: 20040329
  Transmission Date: 20050107
  Serious: Yes (Other)
  Sender: FDA-Public Use
  Company Number: 200411070JP

PATIENT
  Age: 31 Year
  Sex: Male

DRUGS (3)
  1. KETEK [Suspect]
     Indication: ACUTE TONSILLITIS
     Route: 048
     Dates: start: 20040318
  2. DASEN [Concomitant]
     Route: 048
     Dates: start: 20040318
  3. LOXONIN [Concomitant]
     Route: 048
     Dates: start: 20040318

REACTIONS (4)
  - EMOTIONAL DISTRESS [None]
  - HENOCH-SCHONLEIN PURPURA [None]
  - IMPAIRED WORK ABILITY [None]
  - OEDEMA PERIPHERAL [None]
